FAERS Safety Report 11099865 (Version 1)
Quarter: 2015Q2

REPORT INFORMATION
  Report Type: Report from Study
  Country: BR (occurrence: BR)
  Receive Date: 20150508
  Receipt Date: 20150508
  Transmission Date: 20150821
  Serious: Yes (Other)
  Sender: FDA-Public Use
  Company Number: BR-NOVOPROD-422961

PATIENT
  Age: 67 Year
  Sex: Female
  Weight: 67.5 kg

DRUGS (1)
  1. LIRAGLUTIDE FLEXPEN [Suspect]
     Active Substance: LIRAGLUTIDE
     Indication: TYPE 2 DIABETES MELLITUS
     Dosage: 1.8 UNK, UNK
     Route: 058
     Dates: start: 20111220

REACTIONS (1)
  - Diabetic retinopathy [Recovered/Resolved]

NARRATIVE: CASE EVENT DATE: 20140801
